FAERS Safety Report 6434817-9 (Version None)
Quarter: 2009Q4

REPORT INFORMATION
  Report Type: 
  Country: None (occurrence: None)
  Receive Date: 20091110
  Receipt Date: 20091028
  Transmission Date: 20100525
  Serious: Yes (Disabling)
  Sender: FDA-Public Use
  Company Number: ES-JNJFOC-20091009047

PATIENT
  Age: 60 Year
  Sex: Male

DRUGS (1)
  1. REGRANEX [Suspect]
     Indication: ULCER
     Route: 065
     Dates: start: 20090601, end: 20090801

REACTIONS (1)
  - GANGRENE [None]
